FAERS Safety Report 9396959 (Version 1)
Quarter: 2013Q3

REPORT INFORMATION
  Report Type: Spontaneous
  Country: US (occurrence: None)
  Receive Date: 20130710
  Receipt Date: 20130710
  Transmission Date: 20140515
  Serious: Yes (Hospitalization, Other)
  Sender: FDA-Public Use
  Company Number: None

PATIENT
  Age: 59 Year
  Sex: Male
  Weight: 105.1 kg

DRUGS (2)
  1. VANCOMYCIN [Suspect]
     Route: 042
     Dates: start: 20130320, end: 20130324
  2. IBUPROFEN [Suspect]
     Route: 048
     Dates: start: 20130319, end: 20130324

REACTIONS (3)
  - Pericarditis [None]
  - Renal failure acute [None]
  - Dialysis [None]
